FAERS Safety Report 8478350-1 (Version None)
Quarter: 2012Q2

REPORT INFORMATION
  Report Type: 
  Country: None (occurrence: None)
  Receive Date: 20120629
  Receipt Date: 20120620
  Transmission Date: 20120825
  Serious: Yes (Other)
  Sender: FDA-Public Use
  Company Number: US-BAYER-2012-051579

PATIENT
  Age: 28 Year
  Sex: Female

DRUGS (4)
  1. AMOXICILLIN [Concomitant]
     Dosage: 500 MG, UNK
  2. MEDROL [Concomitant]
  3. PLAVIX [Concomitant]
  4. YASMIN [Suspect]
     Dosage: UNK

REACTIONS (1)
  - CEREBRAL INFARCTION [None]
